FAERS Safety Report 13170382 (Version 1)
Quarter: 2017Q1

REPORT INFORMATION
  Report Type: Spontaneous
  Country: US (occurrence: US)
  Receive Date: 20170201
  Receipt Date: 20170201
  Transmission Date: 20170428
  Serious: Yes (Other)
  Sender: FDA-Public Use
  Company Number: US-ZYDUS-013487

PATIENT
  Age: 7 Decade
  Sex: Male

DRUGS (4)
  1. OMEPRAZOLE. [Concomitant]
     Active Substance: OMEPRAZOLE
     Indication: PRODUCT USED FOR UNKNOWN INDICATION
     Route: 065
  2. VALSARTAN. [Concomitant]
     Active Substance: VALSARTAN
     Indication: PRODUCT USED FOR UNKNOWN INDICATION
     Route: 065
  3. SIMVASTATIN. [Suspect]
     Active Substance: SIMVASTATIN
     Indication: HYPERLIPIDAEMIA
     Route: 065
  4. ATORVASTATIN [Suspect]
     Active Substance: ATORVASTATIN
     Indication: CAROTID ARTERY STENOSIS
     Route: 065

REACTIONS (13)
  - Aggression [Recovered/Resolved]
  - Emotional disorder [Recovered/Resolved]
  - Transient global amnesia [Recovered/Resolved]
  - Skin irritation [Recovered/Resolved]
  - Irritability [Recovered/Resolved]
  - Mood altered [Recovered/Resolved]
  - Cognitive disorder [Recovered/Resolved]
  - Myalgia [Unknown]
  - Amnesia [Recovered/Resolved]
  - Carotid artery stenosis [Unknown]
  - Rash [Recovered/Resolved]
  - Personality change [Recovered/Resolved]
  - Dizziness [Recovered/Resolved]
